FAERS Safety Report 7808854-3 (Version None)
Quarter: 2011Q4

REPORT INFORMATION
  Report Type: 
  Country: None (occurrence: None)
  Receive Date: 20111012
  Receipt Date: 20111006
  Transmission Date: 20120403
  Serious: Yes (Other)
  Sender: FDA-Public Use
  Company Number: PHHY2011FR87047

PATIENT
  Age: 57 Year
  Sex: Female

DRUGS (1)
  1. AFINITOR [Suspect]
     Indication: BREAST CANCER METASTATIC
     Dosage: 10 MG, DAILY
     Dates: end: 20110930

REACTIONS (4)
  - THROMBOCYTOPENIA [None]
  - CARBOHYDRATE ANTIGEN 15-3 INCREASED [None]
  - METASTASES TO SPINE [None]
  - METASTATIC PAIN [None]
